FAERS Safety Report 8839761 (Version 1)
Quarter: 2012Q4

REPORT INFORMATION
  Report Type: 
  Country: US (occurrence: US)
  Receive Date: 20121015
  Receipt Date: 20121015
  Transmission Date: 20130627
  Serious: Yes (Hospitalization, Other)
  Sender: FDA-Public Use
  Company Number: US-BAYER-2012-107265

PATIENT
  Age: 41 Year
  Sex: Male
  Weight: 48 kg

DRUGS (26)
  1. TRASYLOL [Suspect]
     Indication: STERNOTOMY
     Dosage: Test dose: 1 mL
     Route: 042
     Dates: start: 20061116, end: 20061116
  2. TRASYLOL [Suspect]
     Indication: AORTIC VALVE REPLACEMENT
     Dosage: Loading dose: 200mL
     Route: 042
     Dates: start: 20061116, end: 20061116
  3. TRASYLOL [Suspect]
     Indication: PULMONARY VALVE REPLACEMENT
     Dosage: 200 ml cardiopulmonary bypass
     Route: 042
     Dates: start: 20061116, end: 20061116
  4. TRASYLOL [Suspect]
     Indication: STERNOTOMY
     Dosage: 50 ml/hour infusion
     Route: 042
     Dates: start: 20061116, end: 20061116
  5. COUMADIN [Concomitant]
     Dosage: 2.5 mg, QD
     Route: 048
  6. PLASMALYTE [GLUCOSE,POTASSIUM CHLORIDE] [Concomitant]
     Dosage: bypass
     Dates: start: 20061116
  7. HESPAN [Concomitant]
     Dosage: bypass
     Dates: start: 20061116
  8. HEPARIN [Concomitant]
     Dosage: 23000 units bypass
     Dates: start: 20061116
  9. HEPARIN [Concomitant]
     Dosage: 18000 units
     Route: 042
  10. MANNITOL [Concomitant]
     Dosage: bypass
     Dates: start: 20061116
  11. SODIUM BICARBONATE [Concomitant]
     Dosage: bypass
     Dates: start: 20061116
  12. SODIUM BICARBONATE [Concomitant]
     Dosage: 2 ampules
     Route: 042
  13. MILRINONE [Concomitant]
     Dosage: bypass
     Dates: start: 20061116
  14. MILRINONE [Concomitant]
     Route: 042
  15. CALCIUM CHLORIDE [Concomitant]
     Dosage: bypass
     Dates: start: 20061116
  16. FENTANYL [Concomitant]
     Dosage: UNK
     Route: 042
     Dates: start: 20061116
  17. ETOMIDATE [Concomitant]
     Dosage: UNK
     Route: 042
     Dates: start: 20061116
  18. ZEMURON [Concomitant]
     Dosage: UNK
     Route: 042
     Dates: start: 20061116
  19. NEO SYNEPHRINE [PHENYLEPHRINE HYDROCHLORIDE] [Concomitant]
     Dosage: UNK
     Route: 042
     Dates: start: 20061116
  20. NOREPINEPHRINE [Concomitant]
     Dosage: UNK
     Route: 042
     Dates: start: 20061116
  21. EPINEPHRINE [Concomitant]
     Dosage: UNK
     Route: 042
     Dates: start: 20061116
  22. CELL SAVER [Concomitant]
     Dosage: 6 unites
     Dates: start: 20061116
  23. PACKED RED BLOOD CELLS [Concomitant]
     Dosage: 2+3 units
     Dates: start: 20061116
  24. PLASMA [Concomitant]
     Dosage: 2+2 units
  25. PLATELETS, HUMAN BLOOD [Concomitant]
     Dosage: 16 pack+8 pack
     Dates: start: 20061116
  26. CRYOPRECIPITATE [Concomitant]
     Dosage: 10 units
     Dates: start: 20061116

REACTIONS (1)
  - Renal failure acute [None]
